FAERS Safety Report 9554753 (Version 1)
Quarter: 2013Q3

REPORT INFORMATION
  Report Type: Report from Study
  Country: GB (occurrence: GB)
  Receive Date: 20130926
  Receipt Date: 20130926
  Transmission Date: 20140515
  Serious: Yes (Hospitalization)
  Sender: FDA-Public Use
  Company Number: GB-ROCHE-1278940

PATIENT
  Age: 5 Year
  Sex: Male

DRUGS (12)
  1. MYCOPHENOLATE MOFETIL [Suspect]
     Indication: RENAL TRANSPLANT
     Route: 065
     Dates: start: 20130621, end: 20130624
  2. MYCOPHENOLATE MOFETIL [Suspect]
     Route: 065
     Dates: start: 20130701, end: 20130704
  3. TACROLIMUS [Concomitant]
     Indication: RENAL TRANSPLANT
     Route: 065
     Dates: start: 20130621, end: 20130624
  4. TACROLIMUS [Concomitant]
     Route: 065
     Dates: start: 20130625
  5. PREDNISOLONE [Concomitant]
     Route: 065
     Dates: start: 20130621
  6. MEROPENEM [Concomitant]
     Route: 065
     Dates: start: 20130620
  7. ASPIRIN [Concomitant]
     Route: 065
     Dates: start: 20130624
  8. ENOXAPARIN [Concomitant]
     Route: 065
     Dates: start: 20130621
  9. DURAMORPH [Concomitant]
     Route: 065
     Dates: start: 20130624
  10. OXYBUTYNIN [Concomitant]
     Route: 065
     Dates: start: 20130624
  11. INSTILLAGEL [Concomitant]
     Route: 065
     Dates: start: 20130624
  12. FUROSEMIDE [Concomitant]
     Route: 065
     Dates: start: 20130623

REACTIONS (2)
  - Diarrhoea [Recovered/Resolved]
  - Renal impairment [Recovered/Resolved]
